FAERS Safety Report 7998352-9 (Version None)
Quarter: 2011Q4

REPORT INFORMATION
  Report Type: 
  Country: None (occurrence: None)
  Receive Date: 20111221
  Receipt Date: 20110805
  Transmission Date: 20120403
  Serious: No
  Sender: FDA-Public Use
  Company Number: US-GLAXOSMITHKLINE-A0940409A

PATIENT
  Sex: Male

DRUGS (1)
  1. LOVAZA [Suspect]
     Indication: BLOOD TRIGLYCERIDES ABNORMAL
     Dosage: 4G PER DAY

REACTIONS (2)
  - ABDOMINAL DISCOMFORT [None]
  - THERAPEUTIC RESPONSE UNEXPECTED [None]
